FAERS Safety Report 7671186-0 (Version None)
Quarter: 2011Q3

REPORT INFORMATION
  Report Type: 
  Country: None (occurrence: None)
  Receive Date: 20110808
  Receipt Date: 20110808
  Transmission Date: 20111222
  Serious: Yes (Other)
  Sender: FDA-Public Use
  Company Number: None

PATIENT
  Age: 80 Year
  Sex: Female
  Weight: 71.4 kg

DRUGS (2)
  1. RITUXIMAB 375MG/M2 ROCHE [Suspect]
     Indication: CHRONIC LYMPHOCYTIC LEUKAEMIA
     Dosage: 690 WEEKLY X 4 WEEKS 041
     Dates: start: 20080820, end: 20080910
  2. CAMPATH [Suspect]
     Indication: CHRONIC LYMPHOCYTIC LEUKAEMIA
     Dosage: 3MG, 10MG + 30MG 30 MG DAY 3,4,5 3XWK X4WKS 057
     Dates: start: 20080813, end: 20080912

REACTIONS (1)
  - MYELODYSPLASTIC SYNDROME [None]
